FAERS Safety Report 5042304-8 (Version None)
Quarter: 2006Q2

REPORT INFORMATION
  Report Type: 
  Country: None (occurrence: None)
  Receive Date: 20060601
  Receipt Date: 20060327
  Transmission Date: 20061013
  Serious: No
  Sender: FDA-Public Use
  Company Number: 2006PV011240

PATIENT
  Sex: Female

DRUGS (1)
  1. BYETTA [Suspect]
     Indication: DRUG USE FOR UNKNOWN INDICATION
     Dosage: 5 MCG; BID; SC
     Route: 058
     Dates: start: 20060201, end: 20060201

REACTIONS (5)
  - AGEUSIA [None]
  - DEPRESSED MOOD [None]
  - MALAISE [None]
  - VOMITING [None]
  - WEIGHT DECREASED [None]
